FAERS Safety Report 17976019 (Version 2)
Quarter: 2020Q3

REPORT INFORMATION
  Report Type: Other
  Country: US (occurrence: US)
  Receive Date: 20200703
  Receipt Date: 20200721
  Transmission Date: 20201103
  Serious: Yes (Hospitalization)
  Sender: FDA-Public Use
  Company Number: US-ROCHE-2384147

PATIENT
  Age: 40 Year
  Sex: Female

DRUGS (7)
  1. RITUXAN [Suspect]
     Active Substance: RITUXIMAB
     Dosage: INFUSE 1000MG INTRAVENOUSLY ON DAY(S) 1 AND DAY(S)
     Route: 042
  2. METHOTREXATE. [Concomitant]
     Active Substance: METHOTREXATE
  3. CELLCEPT [Suspect]
     Active Substance: MYCOPHENOLATE MOFETIL\MYCOPHENOLATE MOFETIL HYDROCHLORIDE
     Indication: SYSTEMIC SCLERODERMA
     Route: 065
  4. MYFORTIC [Concomitant]
     Active Substance: MYCOPHENOLATE SODIUM
  5. RITUXAN [Suspect]
     Active Substance: RITUXIMAB
     Route: 042
  6. RITUXAN [Suspect]
     Active Substance: RITUXIMAB
     Indication: SYSTEMIC SCLERODERMA
     Route: 042
     Dates: start: 20190718
  7. CYTOXAN [Concomitant]
     Active Substance: CYCLOPHOSPHAMIDE

REACTIONS (5)
  - Intentional product use issue [Unknown]
  - B-lymphocyte count decreased [Not Recovered/Not Resolved]
  - Off label use [Unknown]
  - Renal failure [Not Recovered/Not Resolved]
  - Pneumonia [Not Recovered/Not Resolved]

NARRATIVE: CASE EVENT DATE: 201908
